FAERS Safety Report 6708517-1 (Version None)
Quarter: 2010Q2

REPORT INFORMATION
  Report Type: 
  Country: None (occurrence: None)
  Receive Date: 20100503
  Receipt Date: 20090423
  Transmission Date: 20101027
  Serious: No
  Sender: FDA-Public Use
  Company Number: US-ASTRAZENECA-2009UW06596

PATIENT
  Age: 80 Year
  Sex: Female
  Weight: 70.3 kg

DRUGS (6)
  1. NEXIUM [Suspect]
     Indication: GASTRIC ULCER
     Route: 048
  2. PYLERA [Concomitant]
  3. VALTREX [Concomitant]
     Indication: HERPES ZOSTER
  4. SPIRONOLACTONE [Concomitant]
     Indication: BLOOD PRESSURE
  5. LEVOTHYROXINE [Concomitant]
     Indication: THYROID DISORDER
  6. VITAMINS [Concomitant]

REACTIONS (11)
  - ANXIETY [None]
  - ARTHRALGIA [None]
  - BONE PAIN [None]
  - CHROMATURIA [None]
  - DIARRHOEA [None]
  - DRY MOUTH [None]
  - DYSPNOEA [None]
  - ERUCTATION [None]
  - FLATULENCE [None]
  - MYALGIA [None]
  - POLLAKIURIA [None]
